FAERS Safety Report 4354550-7 (Version None)
Quarter: 2004Q2

REPORT INFORMATION
  Report Type: 
  Country: None (occurrence: None)
  Receive Date: 20040503
  Receipt Date: 20040420
  Transmission Date: 20050107
  Serious: Yes (Hospitalization, Other)
  Sender: FDA-Public Use
  Company Number: 2003126709

PATIENT
  Age: 76 Year
  Sex: Male
  Weight: 68.0396 kg

DRUGS (3)
  1. VFEND [Suspect]
     Indication: PNEUMONIA ASPERGILLUS
     Dosage: UNKNOWN (UNKNOWN) INTRAVENOUS (SEE IMAGE)
     Route: 042
     Dates: start: 20031219, end: 20031201
  2. VFEND [Suspect]
     Indication: PNEUMONIA ASPERGILLUS
     Dosage: UNKNOWN (UNKNOWN) INTRAVENOUS (SEE IMAGE)
     Route: 042
     Dates: start: 20031210, end: 20031219
  3. CIPROFLOXACIN [Concomitant]

REACTIONS (2)
  - ABDOMINAL PAIN [None]
  - PYREXIA [None]
